FAERS Safety Report 9197884 (Version 4)
Quarter: 2013Q3

REPORT INFORMATION
  Report Type: Report from Study
  Country: DE (occurrence: DE)
  Receive Date: 20130328
  Receipt Date: 20130813
  Transmission Date: 20140515
  Serious: Yes (Other)
  Sender: FDA-Public Use
  Company Number: DE-JNJFOC-20130315195

PATIENT
  Age: 47 Year
  Sex: Female
  Weight: 96 kg

DRUGS (12)
  1. PALEXIA RETARD [Suspect]
     Indication: PAIN
     Route: 048
     Dates: start: 20130313
  2. PALEXIA RETARD [Suspect]
     Indication: PAIN
     Route: 048
     Dates: start: 20121205, end: 20130313
  3. PALEXIA RETARD [Suspect]
     Indication: PAIN
     Route: 048
     Dates: start: 20121129, end: 20121205
  4. MELPERON [Concomitant]
     Indication: DEPRESSION
     Route: 065
     Dates: end: 20130327
  5. MELPERON [Concomitant]
     Indication: DEPRESSION
     Route: 065
     Dates: start: 20130327
  6. MIRTAZAPIN [Concomitant]
     Indication: DEPRESSION
     Route: 065
  7. CYMBALTA [Concomitant]
     Indication: DEPRESSION
     Route: 065
  8. SERTRALINE [Concomitant]
     Indication: DEPRESSION
     Route: 065
     Dates: start: 20130327
  9. SERTRALINE [Concomitant]
     Indication: DEPRESSION
     Route: 065
     Dates: end: 20130327
  10. VOLTAREN [Concomitant]
     Indication: PRODUCT USED FOR UNKNOWN INDICATION
     Route: 065
     Dates: start: 20130327
  11. VOLTAREN [Concomitant]
     Indication: PRODUCT USED FOR UNKNOWN INDICATION
     Route: 065
     Dates: end: 20130327
  12. LYRICA [Concomitant]
     Indication: PRODUCT USED FOR UNKNOWN INDICATION
     Route: 065

REACTIONS (3)
  - Muscle contractions involuntary [Recovered/Resolved]
  - Insomnia [Recovered/Resolved]
  - Restlessness [Recovered/Resolved]
